FAERS Safety Report 22086013 (Version 1)
Quarter: 2023Q1

REPORT INFORMATION
  Report Type: Other
  Country: NL (occurrence: NL)
  Receive Date: 20230310
  Receipt Date: 20230310
  Transmission Date: 20230418
  Serious: Yes (Other)
  Sender: FDA-Public Use
  Company Number: NL-BoehringerIngelheim-2023-BI-222419

PATIENT
  Age: 47 Year
  Sex: Female

DRUGS (1)
  1. ALTEPLASE [Suspect]
     Active Substance: ALTEPLASE
     Indication: Peripheral artery occlusion
     Route: 013

REACTIONS (6)
  - Blindness cortical [Recovered/Resolved]
  - Tonic convulsion [Recovered/Resolved]
  - Monoplegia [Recovered/Resolved]
  - Contrast media toxicity [Recovered/Resolved]
  - Hemianopia [Recovered/Resolved]
  - Neurotoxicity [Recovered/Resolved]
